FAERS Safety Report 11337269 (Version 1)
Quarter: 2015Q3

REPORT INFORMATION
  Report Type: Spontaneous
  Country: US (occurrence: US)
  Receive Date: 20150803
  Receipt Date: 20150803
  Transmission Date: 20151125
  Serious: Yes (Hospitalization)
  Sender: FDA-Public Use
  Company Number: US-ELI_LILLY_AND_COMPANY-US200903000797

PATIENT
  Age: 17 Year
  Sex: Male
  Weight: 49.3 kg

DRUGS (8)
  1. LITHIUM CARBONATE. [Concomitant]
     Active Substance: LITHIUM CARBONATE
     Dosage: 300 MG, EACH MORNING
     Route: 048
     Dates: start: 2008
  2. MIRALAX [Concomitant]
     Active Substance: POLYETHYLENE GLYCOL 3350
     Dates: start: 2008
  3. ZYPREXA [Suspect]
     Active Substance: OLANZAPINE
     Dosage: 10 MG, DAILY (1/D)
     Route: 048
     Dates: start: 2008
  4. GENOTROPIN [Concomitant]
     Active Substance: SOMATROPIN
     Indication: PRADER-WILLI SYNDROME
     Dosage: 2.6 MG, DAILY (1/D)
     Route: 058
     Dates: start: 20030715
  5. DEPO-TESTOSTERONE [Concomitant]
     Active Substance: TESTOSTERONE CYPIONATE
     Dosage: 150 MG, OTHER
     Route: 030
     Dates: start: 20080127
  6. SYNTHROID [Concomitant]
     Active Substance: LEVOTHYROXINE SODIUM
     Dates: start: 20090106
  7. LITHIUM CARBONATE. [Concomitant]
     Active Substance: LITHIUM CARBONATE
     Dosage: 600 MG, EACH EVENING
     Route: 048
     Dates: start: 2008
  8. OSCAL [Concomitant]
     Active Substance: CALCIUM CARBONATE
     Dates: start: 200811

REACTIONS (2)
  - Priapism [Recovering/Resolving]
  - Drug interaction [Unknown]

NARRATIVE: CASE EVENT DATE: 20090209
